FAERS Safety Report 7120611-2 (Version None)
Quarter: 2010Q4

REPORT INFORMATION
  Report Type: 
  Country: None (occurrence: None)
  Receive Date: 20101124
  Receipt Date: 20101115
  Transmission Date: 20110411
  Serious: Yes (Other)
  Sender: FDA-Public Use
  Company Number: US-TEVA-255448USA

PATIENT
  Age: 22 Year
  Sex: Female

DRUGS (1)
  1. ATROPINE SULFATE [Suspect]
     Indication: ATRIOVENTRICULAR BLOCK SECOND DEGREE
     Route: 042

REACTIONS (1)
  - VENTRICULAR TACHYCARDIA [None]
